FAERS Safety Report 4530114-7 (Version None)
Quarter: 2004Q4

REPORT INFORMATION
  Report Type: 
  Country: None (occurrence: None)
  Receive Date: 20041217
  Receipt Date: 20031211
  Transmission Date: 20050328
  Serious: Yes (Hospitalization)
  Sender: FDA-Public Use
  Company Number: US-ABBOTT-03P-163-0245195-00

PATIENT
  Sex: Female

DRUGS (5)
  1. KALETRA [Suspect]
     Indication: HIV INFECTION
     Route: 048
     Dates: start: 20030616, end: 20031118
  2. KALETRA [Suspect]
     Route: 048
     Dates: start: 20031101, end: 20031212
  3. TENOFOVIR [Suspect]
     Indication: HIV INFECTION
     Route: 048
     Dates: start: 20030616, end: 20031118
  4. DELAVIRDINE [Concomitant]
     Indication: HIV INFECTION
     Route: 048
     Dates: start: 20030616, end: 20031118
  5. LAMIVUDINE [Concomitant]
     Indication: HIV INFECTION
     Route: 048
     Dates: start: 20030616, end: 20031118

REACTIONS (4)
  - ANAEMIA [None]
  - DEHYDRATION [None]
  - FAILURE TO THRIVE [None]
  - RENAL FAILURE [None]
